FAERS Safety Report 11856444 (Version 1)
Quarter: 2015Q4

REPORT INFORMATION
  Report Type: Spontaneous
  Country: US (occurrence: US)
  Receive Date: 20151221
  Receipt Date: 20151221
  Transmission Date: 20160305
  Serious: Yes (Death, Hospitalization)
  Sender: FDA-Public Use
  Company Number: US-SA-2015SA213856

PATIENT
  Age: 15 Year
  Sex: Female

DRUGS (1)
  1. RIFAMPICIN [Suspect]
     Active Substance: RIFAMPIN
     Indication: COMPLETED SUICIDE
     Route: 048

REACTIONS (10)
  - Metabolic acidosis [Not Recovered/Not Resolved]
  - Chromaturia [Recovered/Resolved]
  - Headache [Recovered/Resolved]
  - Cardiac arrest [Fatal]
  - Nausea [Recovered/Resolved]
  - Hypotension [Not Recovered/Not Resolved]
  - Pruritus [Recovered/Resolved]
  - Ventricular tachycardia [Fatal]
  - Heart rate increased [Recovered/Resolved]
  - Pulmonary oedema [Unknown]
